FAERS Safety Report 11167116 (Version 1)
Quarter: 2015Q2

REPORT INFORMATION
  Report Type: Spontaneous
  Country: DK (occurrence: DK)
  Receive Date: 20150605
  Receipt Date: 20150605
  Transmission Date: 20150821
  Serious: Yes (Hospitalization)
  Sender: FDA-Public Use
  Company Number: DK-EMD SERONO-E2B_80013039

PATIENT
  Age: 36 Year
  Sex: Female
  Weight: 56 kg

DRUGS (3)
  1. GONAL-F [Suspect]
     Active Substance: FOLLITROPIN
     Indication: INFERTILITY
     Dosage: STYRKE: 900 IU/ 1.5 ML
     Route: 058
     Dates: start: 20150331, end: 20150411
  2. SUPRECUR [Suspect]
     Active Substance: BUSERELIN
     Indication: INFERTILITY
     Dosage: STYRKE: 0.15 MG/DOSE.
     Route: 045
     Dates: start: 20150311, end: 20150412
  3. OVITRELLE [Concomitant]
     Active Substance: CHORIOGONADOTROPIN ALFA
     Indication: INFERTILITY
     Dates: start: 20150412, end: 20150412

REACTIONS (5)
  - Oedema peripheral [Recovering/Resolving]
  - Ascites [Recovering/Resolving]
  - Pulmonary oedema [Recovering/Resolving]
  - Abdominal pain lower [Recovering/Resolving]
  - Abdominal distension [Recovering/Resolving]

NARRATIVE: CASE EVENT DATE: 201503
